FAERS Safety Report 9625618 (Version 1)
Quarter: 2013Q4

REPORT INFORMATION
  Report Type: Spontaneous
  Country: US (occurrence: None)
  Receive Date: 20131015
  Receipt Date: 20131015
  Transmission Date: 20140711
  Serious: Yes (Life-Threatening)
  Sender: FDA-Public Use
  Company Number: None

PATIENT
  Age: 33 Year
  Sex: Female
  Weight: 74.5 kg

DRUGS (7)
  1. TYGACIL [Suspect]
  2. ACYCLOVIR [Concomitant]
  3. DEMAMETHASONE [Concomitant]
  4. ENOXAPARIN [Concomitant]
  5. REGULAR INSULIN SC [Concomitant]
  6. TPN [Concomitant]
  7. PANTOPRAZOLE [Concomitant]

REACTIONS (5)
  - Pancreatitis [None]
  - Abdominal pain [None]
  - Nausea [None]
  - Amylase abnormal [None]
  - Lipase abnormal [None]
